FAERS Safety Report 24599587 (Version 3)
Quarter: 2025Q1

REPORT INFORMATION
  Report Type: Spontaneous
  Country: US (occurrence: US)
  Receive Date: 20241110
  Receipt Date: 20250211
  Transmission Date: 20250408
  Serious: Yes (Other)
  Sender: SANOFI AVENTIS
  Company Number: US-SA-2024SA318975

PATIENT
  Age: 53 Year
  Sex: Male

DRUGS (11)
  1. DUPIXENT [Suspect]
     Active Substance: DUPILUMAB
     Indication: Dermatitis atopic
     Dosage: 300 MG, QOW
     Route: 058
     Dates: start: 20240528
  2. DUPIXENT [Suspect]
     Active Substance: DUPILUMAB
     Indication: Eczema
  3. MOXIFLOXACIN [Concomitant]
     Active Substance: MOXIFLOXACIN
  4. WELLBUTRIN [Concomitant]
     Active Substance: BUPROPION HYDROCHLORIDE
  5. TYLENOL [Concomitant]
     Active Substance: ACETAMINOPHEN
  6. LATANOPROST [Concomitant]
     Active Substance: LATANOPROST
  7. AMMONIUM LACTATE [Concomitant]
     Active Substance: AMMONIUM LACTATE
  8. ALBUTEROL [Concomitant]
     Active Substance: ALBUTEROL
  9. IBUPROFEN [Concomitant]
     Active Substance: IBUPROFEN
  10. DEXAMETHASONE [Concomitant]
     Active Substance: DEXAMETHASONE
  11. CELESTONE [Concomitant]
     Active Substance: BETAMETHASONE

REACTIONS (8)
  - Glaucoma [Unknown]
  - Eye colour change [Unknown]
  - Faeces soft [Unknown]
  - Diarrhoea [Unknown]
  - Vision blurred [Unknown]
  - Eczema [Recovered/Resolved]
  - Scratch [Unknown]
  - Dry eye [Unknown]

NARRATIVE: CASE EVENT DATE: 20240101
